FAERS Safety Report 14837878 (Version 2)
Quarter: 2018Q2

REPORT INFORMATION
  Report Type: Report from Study
  Country: US (occurrence: US)
  Receive Date: 20180502
  Receipt Date: 20180515
  Transmission Date: 20180711
  Serious: No
  Sender: FDA-Public Use
  Company Number: PHEH2018US016906

PATIENT
  Age: 81 Year
  Sex: Male

DRUGS (2)
  1. ENTRESTO [Suspect]
     Active Substance: SACUBITRIL\VALSARTAN
     Indication: LEFT VENTRICULAR DYSFUNCTION
     Dosage: 24 MG OF SACUBITRIL/26 MG OF VALSARTAN, BID
     Route: 065
     Dates: start: 20180120
  2. ENTRESTO [Suspect]
     Active Substance: SACUBITRIL\VALSARTAN
     Dosage: 49 MG OF SACUBITRIL/51 MG OF VALSARTAN, UNK
     Route: 065
     Dates: start: 20180214

REACTIONS (5)
  - Anxiety [Unknown]
  - Limb discomfort [Unknown]
  - Hypotension [Unknown]
  - Dizziness [Unknown]
  - Crying [Unknown]

NARRATIVE: CASE EVENT DATE: 20180314
